FAERS Safety Report 16902512 (Version 1)
Quarter: 2019Q4

REPORT INFORMATION
  Report Type: Spontaneous
  Country: JP (occurrence: JP)
  Receive Date: 20191010
  Receipt Date: 20191010
  Transmission Date: 20200122
  Serious: Yes (Other)
  Sender: FDA-Public Use
  Company Number: JP-PFIZER INC-2019430527

PATIENT

DRUGS (1)
  1. CORTRIL [Suspect]
     Active Substance: HYDROCORTISONE
     Indication: HORMONE LEVEL ABNORMAL
     Route: 048

REACTIONS (2)
  - Gastrointestinal necrosis [Unknown]
  - Small intestinal perforation [Unknown]
